FAERS Safety Report 23459501 (Version 11)
Quarter: 2025Q1

REPORT INFORMATION
  Report Type: Spontaneous
  Country: JP (occurrence: JP)
  Receive Date: 20240131
  Receipt Date: 20250228
  Transmission Date: 20250409
  Serious: Yes (Life-Threatening, Hospitalization, Disabling, Other)
  Sender: BRISTOL-MYERS SQUIBB COMPANY
  Company Number: JP-BRISTOL-MYERS SQUIBB COMPANY-2024-013755

PATIENT
  Age: 72 Year
  Sex: Male
  Weight: 66.7 kg

DRUGS (8)
  1. YERVOY [Suspect]
     Active Substance: IPILIMUMAB
     Indication: Metastatic renal cell carcinoma
     Route: 041
     Dates: start: 20230808, end: 20230808
  2. YERVOY [Suspect]
     Active Substance: IPILIMUMAB
     Route: 041
     Dates: start: 20230830, end: 20230830
  3. YERVOY [Suspect]
     Active Substance: IPILIMUMAB
     Route: 041
     Dates: start: 20230927, end: 20230927
  4. YERVOY [Suspect]
     Active Substance: IPILIMUMAB
     Route: 041
     Dates: start: 20231108, end: 20231108
  5. OPDIVO [Suspect]
     Active Substance: NIVOLUMAB
     Indication: Metastatic renal cell carcinoma
     Route: 041
     Dates: start: 20230808, end: 20230808
  6. OPDIVO [Suspect]
     Active Substance: NIVOLUMAB
     Route: 041
     Dates: start: 20230830, end: 20230830
  7. OPDIVO [Suspect]
     Active Substance: NIVOLUMAB
     Route: 041
     Dates: start: 20230927, end: 20230927
  8. OPDIVO [Suspect]
     Active Substance: NIVOLUMAB
     Route: 041
     Dates: start: 20231108, end: 20231108

REACTIONS (26)
  - Immune-mediated adrenal insufficiency [Recovered/Resolved with Sequelae]
  - Shock [Unknown]
  - Cardiac failure [Unknown]
  - Cognitive disorder [Unknown]
  - Immune-mediated nephritis [Recovered/Resolved]
  - Adrenocorticotropic hormone deficiency [Not Recovered/Not Resolved]
  - Pleural effusion [Unknown]
  - Oedema [Unknown]
  - Pancreatic atrophy [Unknown]
  - Bladder hypertrophy [Unknown]
  - Renal failure [Unknown]
  - Rash [Recovered/Resolved]
  - Urticaria [Recovered/Resolved]
  - Atrial fibrillation [Unknown]
  - Immune-mediated dermatitis [Recovered/Resolved]
  - Ascites [Unknown]
  - Urinary retention [Recovered/Resolved]
  - Fall [Unknown]
  - Aspartate aminotransferase increased [Unknown]
  - Alanine aminotransferase increased [Unknown]
  - Blood lactate dehydrogenase increased [Unknown]
  - Metastatic renal cell carcinoma [Unknown]
  - Pyrexia [Recovered/Resolved]
  - Hypernatraemia [Recovered/Resolved]
  - Physical deconditioning [Unknown]
  - Blood creatine phosphokinase increased [Unknown]

NARRATIVE: CASE EVENT DATE: 20230830
